FAERS Safety Report 6273363-2 (Version None)
Quarter: 2009Q3

REPORT INFORMATION
  Report Type: 
  Country: None (occurrence: None)
  Receive Date: 20090720
  Receipt Date: 20090713
  Transmission Date: 20100115
  Serious: Yes (Other)
  Sender: FDA-Public Use
  Company Number: US-BAYER-200919877NA

PATIENT
  Age: 66 Year
  Sex: Male

DRUGS (7)
  1. AVELOX [Suspect]
     Indication: UPPER RESPIRATORY TRACT INFECTION
     Dates: start: 20090311
  2. ASPIRIN [Concomitant]
  3. PRILOSEC [Concomitant]
  4. ZOCOR [Concomitant]
  5. LASIX [Concomitant]
  6. BETAPACE [Concomitant]
  7. COUMADIN [Concomitant]

REACTIONS (13)
  - ABASIA [None]
  - BRADYCARDIA [None]
  - CARDIAC FAILURE [None]
  - GASTROINTESTINAL HAEMORRHAGE [None]
  - HEADACHE [None]
  - HEART RATE INCREASED [None]
  - LARGE INTESTINAL HAEMORRHAGE [None]
  - LETHARGY [None]
  - MUSCULAR WEAKNESS [None]
  - MYOCARDIAL INFARCTION [None]
  - SICK SINUS SYNDROME [None]
  - SPEECH DISORDER [None]
  - UNEVALUABLE EVENT [None]
